FAERS Safety Report 8211542-5 (Version None)
Quarter: 2012Q1

REPORT INFORMATION
  Report Type: 
  Country: None (occurrence: None)
  Receive Date: 20120315
  Receipt Date: 20120307
  Transmission Date: 20120608
  Serious: Yes (Death, Hospitalization, Other)
  Sender: FDA-Public Use
  Company Number: US-ASTELLAS-2012US001032

PATIENT
  Age: 79 Year
  Sex: Female

DRUGS (1)
  1. MYCAMINE [Suspect]
     Indication: CANDIDIASIS
     Dosage: UNK
     Route: 065

REACTIONS (5)
  - THROMBOTIC THROMBOCYTOPENIC PURPURA [None]
  - CONTUSION [None]
  - RENAL FAILURE [None]
  - BLOOD LACTATE DEHYDROGENASE INCREASED [None]
  - DEATH [None]
